FAERS Safety Report 18236221 (Version 2)
Quarter: 2020Q3

REPORT INFORMATION
  Report Type: Spontaneous
  Country: CA (occurrence: CA)
  Receive Date: 20200906
  Receipt Date: 20200918
  Transmission Date: 20201103
  Serious: Yes (Other)
  Sender: FDA-Public Use
  Company Number: CA-ROCHE-2671652

PATIENT
  Sex: Female
  Weight: 53.7 kg

DRUGS (20)
  1. MYLAN NITRO SL [Concomitant]
     Active Substance: NITROGLYCERIN
     Dates: start: 20200620
  2. METOPROLOL TARTRATE. [Concomitant]
     Active Substance: METOPROLOL TARTRATE
     Dosage: FILM?CTD 50
     Dates: start: 20200312
  3. CIPROFLOXACIN. [Concomitant]
     Active Substance: CIPROFLOXACIN
     Dates: start: 20200530
  4. CLOPIDOGREL [Concomitant]
     Active Substance: CLOPIDOGREL BISULFATE
     Dates: start: 20200224
  5. TEVA NYSTATIN [Concomitant]
     Active Substance: NYSTATIN
     Dosage: SUSP 100,000 U
     Dates: start: 20200224
  6. AVASTIN [Suspect]
     Active Substance: BEVACIZUMAB
     Indication: COLORECTAL CANCER
     Dosage: 3 WEEKS, ONGOING
     Route: 042
     Dates: start: 20200812
  7. ASA [Concomitant]
     Active Substance: ASPIRIN
     Dosage: EC 81 MG
     Dates: start: 20200721
  8. LORAZEPAM. [Concomitant]
     Active Substance: LORAZEPAM
     Route: 060
     Dates: start: 20200721
  9. AMLODIPINE [Concomitant]
     Active Substance: AMLODIPINE BESYLATE
     Dates: start: 20200312
  10. PANTOPRAZOLE [Concomitant]
     Active Substance: PANTOPRAZOLE
     Dates: start: 20200601
  11. ROSUVASTATIN. [Concomitant]
     Active Substance: ROSUVASTATIN
     Dates: start: 20200721
  12. LORAZEPAM. [Concomitant]
     Active Substance: LORAZEPAM
     Route: 060
     Dates: start: 20200312
  13. AMLODIPINE [Concomitant]
     Active Substance: AMLODIPINE BESYLATE
     Dates: start: 20200721
  14. MONUROL [Concomitant]
     Active Substance: FOSFOMYCIN TROMETHAMINE
     Dosage: 3G/SACHET
     Dates: start: 20200629
  15. NITRO?DUR [Concomitant]
     Active Substance: NITROGLYCERIN
     Dates: start: 20200810
  16. ASA [Concomitant]
     Active Substance: ASPIRIN
     Dosage: EC 81 MG
     Dates: start: 20200312
  17. ONDANSETRON [Concomitant]
     Active Substance: ONDANSETRON
     Dates: start: 20200530
  18. TEVA LENOLTEC NO. 3 [Concomitant]
     Dosage: 300/15/30M
     Dates: start: 20200530
  19. NITROFURANTOIN. [Concomitant]
     Active Substance: NITROFURANTOIN
     Dates: start: 20200820
  20. ROSUVASTATIN. [Concomitant]
     Active Substance: ROSUVASTATIN
     Dates: start: 20200312

REACTIONS (2)
  - Depression [Not Recovered/Not Resolved]
  - Nausea [Unknown]
